FAERS Safety Report 7356378-2 (Version None)
Quarter: 2011Q1

REPORT INFORMATION
  Report Type: 
  Country: None (occurrence: None)
  Receive Date: 20110316
  Receipt Date: 20110310
  Transmission Date: 20110831
  Serious: Yes (Other)
  Sender: FDA-Public Use
  Company Number: US-US-EMD SERONO, INC.-7047140

PATIENT
  Sex: Male

DRUGS (4)
  1. ABILIFY [Concomitant]
     Indication: ABNORMAL BEHAVIOUR
  2. CITALOPRAM HYDROBROMIDE [Concomitant]
  3. REBIF [Suspect]
     Indication: MULTIPLE SCLEROSIS
     Route: 058
     Dates: start: 20100910
  4. CITALOPRAM HYDROBROMIDE [Concomitant]
     Indication: ABNORMAL BEHAVIOUR

REACTIONS (5)
  - TREMOR [None]
  - CEREBRAL ATROPHY [None]
  - ANGER [None]
  - INJECTION SITE PAIN [None]
  - INJECTION SITE ERYTHEMA [None]
